FAERS Safety Report 6640798-5 (Version None)
Quarter: 2010Q1

REPORT INFORMATION
  Report Type: 
  Country: None (occurrence: None)
  Receive Date: 20100318
  Receipt Date: 20100312
  Transmission Date: 20100710
  Serious: Yes (Death, Hospitalization, Other)
  Sender: FDA-Public Use
  Company Number: US-ELI_LILLY_AND_COMPANY-US201003003794

PATIENT
  Sex: Male

DRUGS (2)
  1. ALIMTA [Suspect]
     Indication: LUNG CANCER METASTATIC
     Dosage: 500 D/F, UNKNOWN
     Route: 065
  2. AVASTIN [Concomitant]
     Indication: LUNG CANCER METASTATIC
     Dosage: UNK, UNKNOWN
     Route: 065
     Dates: start: 20080101

REACTIONS (1)
  - PULMONARY HYPERTENSION [None]
